FAERS Safety Report 5549510-4 (Version None)
Quarter: 2007Q4

REPORT INFORMATION
  Report Type: 
  Country: None (occurrence: None)
  Receive Date: 20071212
  Receipt Date: 20071203
  Transmission Date: 20080405
  Serious: Yes (Other)
  Sender: FDA-Public Use
  Company Number: PHBS2007TW20481

PATIENT
  Sex: Female

DRUGS (4)
  1. DIOVAN [Suspect]
     Indication: HYPERTENSION
     Dosage: 160 MG, UNK
     Route: 048
     Dates: start: 20010101, end: 20050101
  2. DIOVAN [Suspect]
     Dosage: 80 MG, UNK
     Route: 048
     Dates: start: 20050101
  3. DIOVAN [Suspect]
     Dosage: 160 MG, UNK
     Route: 048
     Dates: start: 20071201
  4. NORVASC [Concomitant]
     Dosage: HALF TABLET/DAY
     Route: 048
     Dates: start: 20050101

REACTIONS (2)
  - DRUG INEFFECTIVE [None]
  - TACHYCARDIA [None]
